FAERS Safety Report 25157950 (Version 2)
Quarter: 2025Q2

REPORT INFORMATION
  Report Type: Report from Study
  Country: US (occurrence: US)
  Receive Date: 20250404
  Receipt Date: 20250429
  Transmission Date: 20250717
  Serious: No
  Sender: SUNOVION
  Company Number: US-SMPA-2025SPA002815AA

PATIENT

DRUGS (18)
  1. ORGOVYX [Suspect]
     Active Substance: RELUGOLIX
     Indication: Prostate cancer
     Dosage: 120 MG, QD
     Route: 048
     Dates: start: 20250129
  2. CIPROFLOXACIN HYDROCHLORIDE [Concomitant]
     Active Substance: CIPROFLOXACIN HYDROCHLORIDE
     Route: 048
  3. ERLEADA [Concomitant]
     Active Substance: APALUTAMIDE
     Route: 048
  4. FINASTERIDE [Concomitant]
     Active Substance: FINASTERIDE
     Route: 048
  5. Ibu tab [Concomitant]
     Route: 048
  6. TAMSULOSIN [Concomitant]
     Active Substance: TAMSULOSIN
     Route: 048
  7. TRAMADOL HCL [Concomitant]
     Active Substance: TRAMADOL HYDROCHLORIDE
     Route: 048
  8. HERBALS [Concomitant]
     Active Substance: HERBALS
     Route: 065
  9. ZINC [Concomitant]
     Active Substance: ZINC
     Route: 065
  10. CALCIUM\VITAMIN D [Concomitant]
     Active Substance: CALCIUM\VITAMIN D
     Route: 065
  11. Breath fresh [Concomitant]
     Route: 065
  12. AZO URINARY PAIN RELIEF [Concomitant]
     Active Substance: PHENAZOPYRIDINE HYDROCHLORIDE
  13. VITAMIN D3 [Concomitant]
     Active Substance: CHOLECALCIFEROL
     Route: 065
  14. IBUPROFEN [Concomitant]
     Active Substance: IBUPROFEN
     Route: 065
  15. KRILL OIL [Concomitant]
     Active Substance: DIETARY SUPPLEMENT\KRILL OIL
  16. TRAMADOL [Concomitant]
     Active Substance: TRAMADOL
     Route: 065
  17. HERBALS\TURMERIC [Concomitant]
     Active Substance: HERBALS\TURMERIC
     Route: 065
  18. VITAMIN C [Concomitant]
     Active Substance: ASCORBIC ACID
     Route: 065

REACTIONS (4)
  - Parosmia [Unknown]
  - Fatigue [Recovered/Resolved]
  - Asthenia [Recovered/Resolved]
  - Incorrect dose administered [Unknown]
